FAERS Safety Report 14974165 (Version 1)
Quarter: 2018Q2

REPORT INFORMATION
  Report Type: Spontaneous
  Country: LK (occurrence: LK)
  Receive Date: 20180605
  Receipt Date: 20180605
  Transmission Date: 20180711
  Serious: Yes (Hospitalization, Other)
  Sender: FDA-Public Use
  Company Number: LK-AKORN PHARMACEUTICALS-2018AKN00734

PATIENT
  Age: 22 Year
  Sex: Female

DRUGS (1)
  1. RIFAMPICIN/ISONIAZID [Suspect]
     Active Substance: ISONIAZID\RIFAMPIN
     Dosage: 28 TABLETS, ONCE (4.2 G OF STANDARD INH AND 7.2 G OF RIFAMPICIN)
     Route: 048
     Dates: start: 201609, end: 201609

REACTIONS (8)
  - Red man syndrome [Recovered/Resolved]
  - Liver injury [Recovered/Resolved]
  - Toxicity to various agents [Recovered/Resolved]
  - Loss of consciousness [Recovered/Resolved]
  - Neurotoxicity [Recovered/Resolved]
  - Intentional self-injury [Recovered/Resolved]
  - Metabolic acidosis [Recovered/Resolved]
  - Overdose [Recovered/Resolved]

NARRATIVE: CASE EVENT DATE: 201609
